FAERS Safety Report 15972680 (Version 1)
Quarter: 2019Q1

REPORT INFORMATION
  Report Type: Report from Study
  Country: SE (occurrence: SE)
  Receive Date: 20190216
  Receipt Date: 20190216
  Transmission Date: 20190418
  Serious: Yes (Other)
  Sender: FDA-Public Use
  Company Number: SE-ACCORD-107158

PATIENT
  Age: 54 Year
  Sex: Female

DRUGS (2)
  1. QUETIAPINE. [Suspect]
     Active Substance: QUETIAPINE
     Indication: DEPRESSION
     Dosage: 50 MILLIGRAM DAILY;ALSO RECEIVED 400 MILLIGRAM DAILY
     Route: 065
  2. VALPROIC ACID. [Suspect]
     Active Substance: VALPROIC ACID
     Indication: PRODUCT USED FOR UNKNOWN INDICATION
     Dosage: 700 MILLIGRAM DAILY
     Route: 065

REACTIONS (5)
  - Physical assault [Unknown]
  - Speech disorder [Unknown]
  - Pain [Unknown]
  - Gait disturbance [Unknown]
  - Depressed level of consciousness [Unknown]
